FAERS Safety Report 6088096-5 (Version None)
Quarter: 2009Q1

REPORT INFORMATION
  Report Type: 
  Country: None (occurrence: None)
  Receive Date: 20090218
  Receipt Date: 20090205
  Transmission Date: 20090719
  Serious: Yes (Life-Threatening, Other)
  Sender: FDA-Public Use
  Company Number: 56612

PATIENT
  Age: 74 Year
  Sex: Male

DRUGS (2)
  1. ACETYLCYSTEINE [Suspect]
     Indication: ASTHMA
     Dosage: 600MG PO
     Route: 048
     Dates: start: 20040123
  2. ACETYLCYSTEINE [Suspect]
     Indication: CHRONIC OBSTRUCTIVE PULMONARY DISEASE
     Dosage: 600MG PO
     Route: 048
     Dates: start: 20040123

REACTIONS (2)
  - OESOPHAGEAL CARCINOMA [None]
  - OFF LABEL USE [None]
